FAERS Safety Report 6297296-0 (Version None)
Quarter: 2009Q3

REPORT INFORMATION
  Report Type: 
  Country: None (occurrence: None)
  Receive Date: 20090805
  Receipt Date: 20090729
  Transmission Date: 20100115
  Serious: Yes (Other)
  Sender: FDA-Public Use
  Company Number: FR-PFIZER INC-2009247061

PATIENT
  Age: 39 Year

DRUGS (8)
  1. MEDROL [Suspect]
     Indication: BRONCHITIS
     Dosage: 16 MG, 3X/DAY
     Route: 048
     Dates: start: 20090616, end: 20090619
  2. CLARITHROMYCIN [Suspect]
     Indication: BRONCHITIS
     Dosage: 500 MG, UNK
     Route: 048
     Dates: start: 20090616, end: 20090620
  3. PNEUMOREL [Concomitant]
     Indication: BRONCHITIS
     Dosage: UNK
     Route: 048
     Dates: start: 20090616, end: 20090623
  4. FLUTICASONE PROPIONATE [Concomitant]
     Indication: BRONCHITIS
     Dosage: UNK
     Route: 045
     Dates: start: 20090616, end: 20090622
  5. LERCAN [Concomitant]
  6. PRITOR [Concomitant]
  7. DEROXAT [Concomitant]
  8. VASTAREL [Concomitant]

REACTIONS (4)
  - ACUTE GENERALISED EXANTHEMATOUS PUSTULOSIS [None]
  - DRUG TOXICITY [None]
  - LYMPHADENOPATHY [None]
  - ORAL CANDIDIASIS [None]
